FAERS Safety Report 8414739-4 (Version None)
Quarter: 2012Q2

REPORT INFORMATION
  Report Type: 
  Country: None (occurrence: None)
  Receive Date: 20120605
  Receipt Date: 20120531
  Transmission Date: 20120825
  Serious: Yes (Other)
  Sender: FDA-Public Use
  Company Number: JP-BAYER-2012-054620

PATIENT
  Age: 68 Year
  Sex: Female

DRUGS (3)
  1. IOPAMIRON 370 [Suspect]
     Indication: COMPUTERISED TOMOGRAM
     Dosage: UNK
     Route: 042
     Dates: start: 20120410, end: 20120410
  2. MAGNEVIST [Suspect]
     Indication: BILE DUCT CANCER
  3. MAGNEVIST [Suspect]
     Indication: NUCLEAR MAGNETIC RESONANCE IMAGING
     Dosage: 15 ML, ONCE
     Route: 042
     Dates: start: 20120420, end: 20120420

REACTIONS (2)
  - ECZEMA [None]
  - TOXIC SKIN ERUPTION [None]
